FAERS Safety Report 10214792 (Version 1)
Quarter: 2014Q2

REPORT INFORMATION
  Report Type: Report from Study
  Country: US (occurrence: US)
  Receive Date: 20140603
  Receipt Date: 20140603
  Transmission Date: 20141212
  Serious: Yes (Hospitalization, Other)
  Sender: FDA-Public Use
  Company Number: US-ELI_LILLY_AND_COMPANY-US201405008057

PATIENT
  Sex: Female

DRUGS (4)
  1. DULOXETINE HYDROCHLORIDE [Suspect]
     Indication: PAIN
     Dosage: 60 MG, QD
     Route: 065
  2. DULOXETINE HYDROCHLORIDE [Suspect]
     Indication: NERVE INJURY
     Dosage: 120 MG, QD
     Route: 065
  3. DULOXETINE HYDROCHLORIDE [Suspect]
     Indication: FIBROMYALGIA
  4. DILAUDID [Concomitant]
     Indication: PAIN
     Dosage: UNK, EVERY 2 HRS

REACTIONS (8)
  - Venous thrombosis limb [Unknown]
  - Haemorrhage [Unknown]
  - Haematoma [Unknown]
  - Bedridden [Unknown]
  - Intentional product misuse [Unknown]
  - Decreased appetite [Unknown]
  - Drug ineffective [Unknown]
  - Intentional overdose [Unknown]
